FAERS Safety Report 11253252 (Version 1)
Quarter: 2015Q3

REPORT INFORMATION
  Report Type: Spontaneous
  Country: US (occurrence: US)
  Receive Date: 20150709
  Receipt Date: 20150709
  Transmission Date: 20151125
  Serious: No
  Sender: FDA-Public Use
  Company Number: US-TEVA-498189USA

PATIENT
  Age: 64 Year
  Sex: Female

DRUGS (1)
  1. VENLAFAXINE [Suspect]
     Active Substance: VENLAFAXINE HYDROCHLORIDE
     Dates: end: 20140724

REACTIONS (14)
  - Blood pressure increased [Unknown]
  - Headache [Unknown]
  - Paraesthesia [Unknown]
  - Malaise [Unknown]
  - Feeling abnormal [Unknown]
  - Abdominal pain upper [Unknown]
  - Confusional state [Unknown]
  - Mouth ulceration [Unknown]
  - Breath odour [Unknown]
  - Dizziness [Unknown]
  - Weight increased [Unknown]
  - Constipation [Unknown]
  - Dry mouth [Unknown]
  - Crying [Unknown]
